FAERS Safety Report 4496938-X (Version None)
Quarter: 2004Q4

REPORT INFORMATION
  Report Type: 
  Country: None (occurrence: None)
  Receive Date: 20041109
  Receipt Date: 20041027
  Transmission Date: 20050328
  Serious: Yes (Other)
  Sender: FDA-Public Use
  Company Number: AU-MERCK-0411AUS00030

PATIENT
  Age: 14 Year
  Sex: Male

DRUGS (4)
  1. VIOXX [Suspect]
     Indication: PYREXIA
     Route: 048
  2. VIOXX [Suspect]
     Indication: ARTHRALGIA
     Route: 048
  3. IBUPROFEN [Suspect]
     Indication: PYREXIA
     Route: 065
  4. IBUPROFEN [Suspect]
     Indication: ARTHRALGIA
     Route: 065

REACTIONS (4)
  - NEPHRITIS [None]
  - PRESCRIBED OVERDOSE [None]
  - RENAL FAILURE ACUTE [None]
  - RENAL INFARCT [None]
